FAERS Safety Report 11235088 (Version 1)
Quarter: 2015Q3

REPORT INFORMATION
  Report Type: Spontaneous
  Country: CA (occurrence: CA)
  Receive Date: 20150702
  Receipt Date: 20150702
  Transmission Date: 20151125
  Serious: Yes (Other)
  Sender: FDA-Public Use
  Company Number: CA-BAXTER-2015BAX034592

PATIENT
  Age: 76 Year
  Sex: Male
  Weight: 81.5 kg

DRUGS (6)
  1. DIANEAL LOW CALCIUM PERITONEAL DIALYSIS SOLUTION WITH DEXTROSE [Suspect]
     Active Substance: CALCIUM CHLORIDE\DEXTROSE\MAGNESIUM CHLORIDE\SODIUM CHLORIDE\SODIUM LACTATE
     Indication: CHRONIC KIDNEY DISEASE
     Route: 033
  2. EXTRANEAL [Suspect]
     Active Substance: CALCIUM CHLORIDE\ICODEXTRIN\MAGNESIUM CHLORIDE\SODIUM CHLORIDE\SODIUM LACTATE
     Indication: CHRONIC KIDNEY DISEASE
     Route: 033
  3. SLOW-K [Suspect]
     Active Substance: POTASSIUM CHLORIDE
     Route: 065
  4. LASIX [Suspect]
     Active Substance: FUROSEMIDE
     Indication: CHRONIC KIDNEY DISEASE
     Route: 065
  5. SLOW-K [Suspect]
     Active Substance: POTASSIUM CHLORIDE
     Indication: BLOOD POTASSIUM ABNORMAL
     Route: 065
  6. DIANEAL W/ DEXTROSE 2.5% [Suspect]
     Active Substance: CALCIUM CHLORIDE\DEXTROSE\MAGNESIUM CHLORIDE\SODIUM CHLORIDE\SODIUM LACTATE
     Indication: CHRONIC KIDNEY DISEASE
     Route: 033

REACTIONS (12)
  - Musculoskeletal stiffness [Unknown]
  - Rales [Unknown]
  - Breath sounds abnormal [Unknown]
  - Secretion discharge [Unknown]
  - Bone metabolism disorder [Unknown]
  - Hypoalbuminaemia [Unknown]
  - Blood potassium abnormal [Unknown]
  - Atelectasis [Unknown]
  - Nephrogenic anaemia [Unknown]
  - Fluid overload [Unknown]
  - Discomfort [Unknown]
  - Hyponatraemia [Unknown]
